FAERS Safety Report 16621461 (Version 1)
Quarter: 2019Q3

REPORT INFORMATION
  Report Type: Spontaneous
  Country: US (occurrence: US)
  Receive Date: 20190723
  Receipt Date: 20190723
  Transmission Date: 20191004
  Serious: No
  Sender: FDA-Public Use
  Company Number: US-OTSUKA-2018_035387

PATIENT
  Sex: Male
  Weight: 99.77 kg

DRUGS (4)
  1. REXULTI [Suspect]
     Active Substance: BREXPIPRAZOLE
     Indication: DEPRESSION
     Dosage: 1 MG, QD
     Route: 048
  2. REXULTI [Suspect]
     Active Substance: BREXPIPRAZOLE
     Dosage: 2 MG, QD
     Route: 048
  3. REXULTI [Suspect]
     Active Substance: BREXPIPRAZOLE
     Dosage: 4 MG, QD
     Route: 048
  4. PRISTIQ EXTENDED-RELEASE [Concomitant]
     Active Substance: DESVENLAFAXINE SUCCINATE
     Indication: PRODUCT USED FOR UNKNOWN INDICATION
     Dosage: UNK
     Route: 065

REACTIONS (9)
  - Decreased appetite [Unknown]
  - Sensitive skin [Unknown]
  - Overdose [Unknown]
  - Weight increased [Not Recovered/Not Resolved]
  - Rash generalised [Recovering/Resolving]
  - Glucose tolerance impaired [Unknown]
  - Body temperature abnormal [Unknown]
  - Feeling hot [Unknown]
  - Blood glucose increased [Unknown]
